FAERS Safety Report 14304510 (Version 1)
Quarter: 2017Q4

REPORT INFORMATION
  Report Type: Spontaneous
  Country: JP (occurrence: JP)
  Receive Date: 20171219
  Receipt Date: 20171219
  Transmission Date: 20180321
  Serious: Yes (Life-Threatening, Hospitalization, Other)
  Sender: FDA-Public Use
  Company Number: JP-OTSUKA-03100-JPN-06-0042

PATIENT
  Age: 25 Year
  Sex: Male
  Weight: 100 kg

DRUGS (11)
  1. BENZALIN [Concomitant]
     Active Substance: NITRAZEPAM
     Dosage: 20 MG, QD
     Route: 048
     Dates: start: 20060512, end: 20060606
  2. RISPERIDONE. [Suspect]
     Active Substance: RISPERIDONE
     Indication: SCHIZOPHRENIA
     Dosage: 6 MG, QD
     Route: 048
     Dates: start: 20060512
  3. ZOPICLONE [Concomitant]
     Active Substance: ZOPICLONE
     Indication: INSOMNIA
     Dosage: 10 MG, UNK
     Route: 048
     Dates: start: 20060512
  4. RISPERDAL [Suspect]
     Active Substance: RISPERIDONE
     Dosage: 6 MG, QD
     Route: 048
     Dates: start: 20060512
  5. ABILIFY [Suspect]
     Active Substance: ARIPIPRAZOLE
     Dosage: 6 MG, QD
     Route: 048
     Dates: start: 20060622, end: 20060627
  6. AMOBAN [Concomitant]
     Active Substance: ZOPICLONE
     Dosage: 10 MG, QD
     Route: 048
     Dates: start: 20060512
  7. BENZALIN [Concomitant]
     Active Substance: NITRAZEPAM
     Dosage: 10 MG, QD
     Route: 048
     Dates: start: 20060607, end: 20060621
  8. ARTANE [Concomitant]
     Active Substance: TRIHEXYPHENIDYL HYDROCHLORIDE
     Dosage: 4 MG, QD
     Route: 048
     Dates: start: 20060614, end: 20060620
  9. ARTANE [Concomitant]
     Active Substance: TRIHEXYPHENIDYL HYDROCHLORIDE
     Dosage: 2 MG, QD
     Route: 048
     Dates: start: 20060621
  10. BENZALIN [Concomitant]
     Active Substance: NITRAZEPAM
     Dosage: 5 MG, QD
     Route: 048
     Dates: start: 20060622, end: 20060627
  11. ARTANE [Concomitant]
     Active Substance: TRIHEXYPHENIDYL HYDROCHLORIDE
     Dosage: 2 MG, TID
     Route: 048
     Dates: start: 20060512, end: 20060613

REACTIONS (7)
  - Feeling abnormal [Recovering/Resolving]
  - Gaze palsy [Recovered/Resolved]
  - Suicide attempt [Recovered/Resolved]
  - Depressed mood [Recovering/Resolving]
  - Headache [Recovered/Resolved]
  - Feeling abnormal [Recovering/Resolving]
  - Dizziness [Recovering/Resolving]

NARRATIVE: CASE EVENT DATE: 20060623
